FAERS Safety Report 20582679 (Version 1)
Quarter: 2022Q1

REPORT INFORMATION
  Report Type: Report from Study
  Country: US (occurrence: US)
  Receive Date: 20220311
  Receipt Date: 20220311
  Transmission Date: 20220424
  Serious: Yes (Death, Hospitalization, Other)
  Sender: FDA-Public Use
  Company Number: US-BAYER-2020-246048

PATIENT
  Age: 28 Year
  Sex: Male

DRUGS (13)
  1. ALPRAZOLAM [Interacting]
     Active Substance: ALPRAZOLAM
     Dosage: UNK
  2. DOXEPIN HCL [Interacting]
     Active Substance: DOXEPIN HYDROCHLORIDE
     Dosage: UNK
  3. DIAZEPAM [Interacting]
     Active Substance: DIAZEPAM
     Dosage: UNK
  4. FENTANYL CITRATE [Interacting]
     Active Substance: FENTANYL CITRATE
     Dosage: UNK
  5. ACETAMINOPHEN [Interacting]
     Active Substance: ACETAMINOPHEN
     Dosage: UNK
  6. AMPHETAMINE [Interacting]
     Active Substance: AMPHETAMINE
     Dosage: UNK
  7. CHLORPHENIRAMINE [Interacting]
     Active Substance: CHLORPHENIRAMINE
     Dosage: UNK
  8. ETIZOLAM [Interacting]
     Active Substance: ETIZOLAM
     Dosage: UNK
  9. HYDROCODONE [Interacting]
     Active Substance: HYDROCODONE
     Dosage: UNK
  10. NORDAZEPAM [Interacting]
     Active Substance: NORDAZEPAM
     Dosage: UNK
  11. METHAMPHETAMINE [Interacting]
     Active Substance: METHAMPHETAMINE
     Dosage: UNK
  12. PROMETHAZINE [Interacting]
     Active Substance: PROMETHAZINE HYDROCHLORIDE
     Dosage: UNK
  13. TEMAZEPAM [Interacting]
     Active Substance: TEMAZEPAM
     Dosage: UNK

REACTIONS (4)
  - Drug interaction [Fatal]
  - Toxicity to various agents [Fatal]
  - Pulmonary congestion [Fatal]
  - Pulmonary oedema [Fatal]

NARRATIVE: CASE EVENT DATE: 20190401
